FAERS Safety Report 5012365-0 (Version None)
Quarter: 2006Q2

REPORT INFORMATION
  Report Type: 
  Country: None (occurrence: None)
  Receive Date: 20060525
  Receipt Date: 20060525
  Transmission Date: 20061013
  Serious: Yes (Disabling)
  Sender: FDA-Public Use
  Company Number: None

PATIENT
  Age: 45 Year
  Sex: Male

DRUGS (1)
  1. FAMOTIDINE [Suspect]
     Indication: HYPERCHLORHYDRIA
     Dosage: 20MG  BID  PO
     Route: 048
     Dates: start: 20051226, end: 20060120

REACTIONS (1)
  - LEUKOPENIA [None]
